FAERS Safety Report 8449446-5 (Version None)
Quarter: 2012Q2

REPORT INFORMATION
  Report Type: 
  Country: None (occurrence: None)
  Receive Date: 20120619
  Receipt Date: 20120613
  Transmission Date: 20120825
  Serious: Yes (Other)
  Sender: FDA-Public Use
  Company Number: US-FRI-1000031338

PATIENT
  Sex: Female

DRUGS (2)
  1. VIIBRYD [Suspect]
     Dosage: 30 MG
     Route: 048
  2. VIIBRYD [Suspect]
     Dosage: 40 MG
     Route: 048

REACTIONS (2)
  - SEDATION [None]
  - SUICIDAL IDEATION [None]
